FAERS Safety Report 4743821-8 (Version None)
Quarter: 2005Q3

REPORT INFORMATION
  Report Type: 
  Country: None (occurrence: None)
  Receive Date: 20050809
  Receipt Date: 20050506
  Transmission Date: 20060218
  Serious: Yes (Hospitalization)
  Sender: FDA-Public Use
  Company Number: 2005FR-00190

PATIENT
  Age: 90 Year
  Sex: Male

DRUGS (3)
  1. IBUPROFEN [Suspect]
     Indication: OSTEOARTHRITIS
     Dosage: 400 MG
     Route: 048
     Dates: end: 20050404
  2. DOCUSATE [Concomitant]
  3. PARACETAMOL [Concomitant]

REACTIONS (1)
  - GASTROINTESTINAL HAEMORRHAGE [None]
